FAERS Safety Report 16105434 (Version 3)
Quarter: 2019Q4

REPORT INFORMATION
  Report Type: Spontaneous
  Country: US (occurrence: US)
  Receive Date: 20190322
  Receipt Date: 20191025
  Transmission Date: 20200122
  Serious: Yes (Hospitalization)
  Sender: FDA-Public Use
  Company Number: US-VERTEX PHARMACEUTICALS-2019-002308

PATIENT
  Age: 11 Year
  Sex: Female

DRUGS (4)
  1. PERTZYE [Concomitant]
     Active Substance: PANCRELIPASE AMYLASE\PANCRELIPASE LIPASE\PANCRELIPASE PROTEASE
     Dosage: UNK
  2. CAYSTON [Concomitant]
     Active Substance: AZTREONAM
     Dosage: 75 MG
  3. ORKAMBI [Suspect]
     Active Substance: IVACAFTOR\LUMACAFTOR
     Indication: CYSTIC FIBROSIS
     Dosage: 100/125 MG TABLETS, BID
     Route: 048
     Dates: start: 20180516
  4. PULMOZYME [Concomitant]
     Active Substance: DORNASE ALFA
     Dosage: 1 MILLIGRAM

REACTIONS (3)
  - Atypical mycobacterial lower respiratory tract infection [Not Recovered/Not Resolved]
  - Chest discomfort [Unknown]
  - Infective pulmonary exacerbation of cystic fibrosis [Recovering/Resolving]

NARRATIVE: CASE EVENT DATE: 2019
